FAERS Safety Report 5493102-2 (Version None)
Quarter: 2007Q4

REPORT INFORMATION
  Report Type: 
  Country: None (occurrence: None)
  Receive Date: 20071023
  Receipt Date: 20071012
  Transmission Date: 20080405
  Serious: Yes (Hospitalization)
  Sender: FDA-Public Use
  Company Number: AU-JNJFOC-20071004686

PATIENT
  Age: 54 Year
  Sex: Female

DRUGS (6)
  1. TRAMADOL HCL [Suspect]
     Indication: SYNOVITIS
     Route: 048
     Dates: start: 20070504, end: 20070511
  2. ZOLOFT [Suspect]
     Indication: DEPRESSION
     Route: 048
  3. PANADOL [Concomitant]
     Route: 065
  4. ASPIRIN [Concomitant]
     Route: 065
  5. HYDROCHLOROTHIAZIDE [Concomitant]
     Route: 065
  6. OESTRADIOL [Concomitant]
     Route: 065

REACTIONS (3)
  - CONFUSIONAL STATE [None]
  - PARANOIA [None]
  - SEROTONIN SYNDROME [None]
